FAERS Safety Report 9028735 (Version 2)
Quarter: 2013Q1

REPORT INFORMATION
  Report Type: Spontaneous
  Country: US (occurrence: US)
  Receive Date: 20130124
  Receipt Date: 20130305
  Transmission Date: 20140127
  Serious: No
  Sender: FDA-Public Use
  Company Number: US-PFIZER INC-2013028872

PATIENT
  Age: 63 Year
  Sex: Male
  Weight: 72.56 kg

DRUGS (3)
  1. VIAGRA [Suspect]
     Indication: ERECTILE DYSFUNCTION
     Dosage: 25 MG, AS NEEDED
     Route: 048
     Dates: start: 2008
  2. VIAGRA [Suspect]
     Dosage: 50 MG, AS NEEDED
     Route: 048
  3. VIAGRA [Suspect]
     Dosage: 100 MG, AS NEEDED
     Route: 048
     Dates: end: 20130122

REACTIONS (1)
  - Drug ineffective [Unknown]
